FAERS Safety Report 15182714 (Version 2)
Quarter: 2018Q3

REPORT INFORMATION
  Report Type: Spontaneous
  Country: JP (occurrence: JP)
  Receive Date: 20180723
  Receipt Date: 20180723
  Transmission Date: 20181010
  Serious: Yes (Hospitalization, Other)
  Sender: FDA-Public Use
  Company Number: PHHY2017JP204279

PATIENT
  Age: 54 Year
  Sex: Female
  Weight: 56 kg

DRUGS (2)
  1. PREDNISOLONE. [Suspect]
     Active Substance: PREDNISOLONE
     Indication: EYELID OEDEMA
     Dosage: 5 MG, ABOUT 7 TIMES A MONTH
     Route: 065
  2. PREDNISOLONE. [Suspect]
     Active Substance: PREDNISOLONE
     Indication: ANGIOEDEMA

REACTIONS (6)
  - Immunoglobulin G4 related disease [Recovering/Resolving]
  - Eye disorder [Recovering/Resolving]
  - Symptom masked [Recovering/Resolving]
  - Mikulicz^s disease [Recovering/Resolving]
  - Hepatic function abnormal [Recovering/Resolving]
  - Retroperitoneal fibrosis [Recovering/Resolving]
